FAERS Safety Report 6554974-3 (Version None)
Quarter: 2010Q1

REPORT INFORMATION
  Report Type: 
  Country: None (occurrence: None)
  Receive Date: 20100127
  Receipt Date: 20100119
  Transmission Date: 20100710
  Serious: Yes (Hospitalization)
  Sender: FDA-Public Use
  Company Number: FR-JNJFOC-20100108324

PATIENT
  Age: 78 Year
  Sex: Male

DRUGS (11)
  1. HALDOL [Suspect]
     Indication: DRUG USE FOR UNKNOWN INDICATION
     Route: 048
     Dates: start: 19890101, end: 20090717
  2. IMOVANE [Concomitant]
     Route: 065
     Dates: end: 20090717
  3. SEROPLEX [Concomitant]
     Route: 065
  4. SEROPLEX [Concomitant]
     Route: 065
  5. XANAX [Concomitant]
     Route: 065
  6. XANAX [Concomitant]
     Route: 065
  7. LEXOMIL [Concomitant]
     Route: 065
  8. NEBILOX [Concomitant]
     Route: 065
  9. NISIS [Concomitant]
     Route: 065
  10. KARDEGIC [Concomitant]
     Route: 065
  11. LEPTICUR [Concomitant]

REACTIONS (6)
  - AKINESIA [None]
  - EXTRAPYRAMIDAL DISORDER [None]
  - FALL [None]
  - GENERAL PHYSICAL HEALTH DETERIORATION [None]
  - RENAL FAILURE ACUTE [None]
  - RHABDOMYOLYSIS [None]
